FAERS Safety Report 9735243 (Version 1)
Quarter: 2013Q4

REPORT INFORMATION
  Report Type: Spontaneous
  Country: CH (occurrence: None)
  Receive Date: 20131204
  Receipt Date: 20131204
  Transmission Date: 20140711
  Serious: Yes (Hospitalization, Other)
  Sender: FDA-Public Use
  Company Number: SP07271

PATIENT
  Age: 75 Year
  Sex: Female
  Weight: 58 kg

DRUGS (3)
  1. MOVIPREP (SOLUTION) [Suspect]
     Indication: COLONOSCOPY
     Route: 048
     Dates: start: 20131024, end: 20131025
  2. LUMIGAN [Concomitant]
  3. FRAXIPARINE [Concomitant]

REACTIONS (5)
  - Blood bicarbonate decreased [None]
  - Base excess increased [None]
  - Blood pH decreased [None]
  - PCO2 increased [None]
  - PO2 increased [None]
